FAERS Safety Report 17465196 (Version 2)
Quarter: 2020Q1

REPORT INFORMATION
  Report Type: Report from Study
  Country: None (occurrence: CH)
  Receive Date: 20200226
  Receipt Date: 20200311
  Transmission Date: 20200409
  Serious: Yes (Hospitalization)
  Sender: FDA-Public Use
  Company Number: CH-ABBVIE-20K-151-3292284-00

PATIENT
  Sex: Male

DRUGS (3)
  1. DUODOPA [Suspect]
     Active Substance: CARBIDOPA\LEVODOPA
     Dosage: MD: 6 ML, CRD: 1.6 ML/H, CRN: 0 ML/H, ED: 2 ML?16 H THERAPY
     Route: 050
     Dates: start: 20190710, end: 20200219
  2. DUODOPA [Suspect]
     Active Substance: CARBIDOPA\LEVODOPA
     Indication: PARKINSON^S DISEASE
     Route: 050
     Dates: start: 20140128, end: 20190710
  3. DUODOPA [Suspect]
     Active Substance: CARBIDOPA\LEVODOPA
     Dosage: MD: 6 ML, CRD: 1.6 ML/H, CRN: 0 ML/H, ED: 1.5 ML?16 H THERAPY, DOSE REDUCED
     Route: 050
     Dates: start: 20200219

REACTIONS (3)
  - Apathy [Unknown]
  - Stoma site hypergranulation [Not Recovered/Not Resolved]
  - Hyperkinesia [Not Recovered/Not Resolved]
